FAERS Safety Report 4500573-4 (Version None)
Quarter: 2004Q4

REPORT INFORMATION
  Report Type: 
  Country: None (occurrence: None)
  Receive Date: 20041115
  Receipt Date: 20041104
  Transmission Date: 20050328
  Serious: Yes (Death)
  Sender: FDA-Public Use
  Company Number: US-JNJFOC-20041101341

PATIENT
  Sex: Male

DRUGS (7)
  1. DOXIL [Suspect]
     Indication: MULTIPLE MYELOMA
     Route: 042
  2. EPOGEN [Concomitant]
     Dosage: 40,000 U, INTRAVENOUS OR SUBCUTANEOUS
  3. DECADRON [Concomitant]
  4. ONCOVIN [Concomitant]
  5. PREDNISONE [Concomitant]
  6. ANZEMET [Concomitant]
  7. AREDIA [Concomitant]

REACTIONS (3)
  - BODY TEMPERATURE INCREASED [None]
  - CARDIAC DISORDER [None]
  - MALIGNANT NEOPLASM PROGRESSION [None]
